FAERS Safety Report 7104111-1 (Version None)
Quarter: 2010Q4

REPORT INFORMATION
  Report Type: 
  Country: None (occurrence: None)
  Receive Date: 20101115
  Receipt Date: 20100525
  Transmission Date: 20110411
  Serious: No
  Sender: FDA-Public Use
  Company Number: US-ALLERGAN-1006845US

PATIENT
  Age: 47 Year
  Sex: Female

DRUGS (1)
  1. BOTOXA? [Suspect]
     Indication: BACK PAIN
     Dosage: UNK
     Dates: start: 20100510, end: 20100510

REACTIONS (6)
  - ABDOMINAL PAIN UPPER [None]
  - DIZZINESS [None]
  - DRUG INEFFECTIVE [None]
  - HEADACHE [None]
  - HYPOAESTHESIA [None]
  - PRURITUS GENERALISED [None]
